FAERS Safety Report 24900830 (Version 5)
Quarter: 2025Q2

REPORT INFORMATION
  Report Type: Spontaneous
  Country: IT (occurrence: IT)
  Receive Date: 20250129
  Receipt Date: 20250531
  Transmission Date: 20250717
  Serious: Yes (Hospitalization, Other)
  Sender: STEMLINE THERAPEUTICS
  Company Number: IT-Stemline Therapeutics, Inc.-2024ST004541

PATIENT

DRUGS (42)
  1. ELZONRIS [Suspect]
     Active Substance: TAGRAXOFUSP-ERZS
     Indication: Blastic plasmacytoid dendritic cell neoplasia
     Dosage: 0.62 MG, DAILY (AT 9:00AM)
     Route: 041
     Dates: start: 20240708, end: 20240710
  2. CIPROFLOXACIN [Concomitant]
     Active Substance: CIPROFLOXACIN
     Indication: Product used for unknown indication
     Dosage: 500 MG, DAILY
     Route: 048
     Dates: start: 20240707
  3. CIPROFLOXACIN [Concomitant]
     Active Substance: CIPROFLOXACIN
     Dosage: 500 MG, BID
     Route: 048
     Dates: start: 20240708, end: 20240716
  4. CIPROFLOXACIN [Concomitant]
     Active Substance: CIPROFLOXACIN
     Dosage: 500 MG, DAILY
     Dates: start: 20240717, end: 20240717
  5. FUROSEMIDE [Concomitant]
     Active Substance: FUROSEMIDE
     Indication: Product used for unknown indication
     Dosage: 20 MG, DAILY
     Route: 042
     Dates: start: 20240710, end: 20240711
  6. FUROSEMIDE [Concomitant]
     Active Substance: FUROSEMIDE
     Dosage: 20 MG, BID
     Route: 042
     Dates: start: 20240713, end: 20240713
  7. FUROSEMIDE [Concomitant]
     Active Substance: FUROSEMIDE
     Dosage: 20 MG, TID
     Route: 042
     Dates: start: 20240714, end: 20240715
  8. FUROSEMIDE [Concomitant]
     Active Substance: FUROSEMIDE
     Dosage: 40 MG, DAILY
     Route: 042
     Dates: start: 20240716, end: 20240716
  9. FUROSEMIDE [Concomitant]
     Active Substance: FUROSEMIDE
     Dosage: 250 MG, BID (250.0 MG 0.5 ML/H AT 5:00 P.M. - 0 ML/H AT 11:00 P.M)
     Route: 041
     Dates: start: 20240716, end: 20240716
  10. FUROSEMIDE [Concomitant]
     Active Substance: FUROSEMIDE
     Dosage: 250 MG, DAILY (250.0 MG 1 ML/H AT 11:00 P.M)
     Route: 041
     Dates: start: 20240716, end: 20240716
  11. FUROSEMIDE [Concomitant]
     Active Substance: FUROSEMIDE
     Dosage: 250 MG, DAILY, (2ML/H AT 11:00 AM)
     Route: 041
     Dates: start: 20240717
  12. SALINE [Concomitant]
     Active Substance: SODIUM CHLORIDE
     Indication: Product used for unknown indication
     Dosage: 3 ML, DAILY (3 ML AT 9:00 A.M.)
     Route: 041
     Dates: start: 20240708, end: 20240710
  13. SALINE [Concomitant]
     Active Substance: SODIUM CHLORIDE
     Route: 041
     Dates: start: 20240708, end: 20240710
  14. SALINE [Concomitant]
     Active Substance: SODIUM CHLORIDE
     Dosage: 500 ML, BID (500 ML AT 12:00 P.M. - 500 ML AT 3:00 P.M.)
     Route: 041
     Dates: start: 20240709, end: 20240709
  15. SALINE [Concomitant]
     Active Substance: SODIUM CHLORIDE
     Dosage: 3 ML, DAILY (3 ML AT 9:00 A.M.)
     Route: 041
     Dates: start: 20240712, end: 20240712
  16. SALINE [Concomitant]
     Active Substance: SODIUM CHLORIDE
     Dosage: 100 ML (100 ML AT 9:00 A.M.)
     Route: 041
     Dates: start: 20240712, end: 20240712
  17. SALINE [Concomitant]
     Active Substance: SODIUM CHLORIDE
     Dosage: 500 ML, DAILY (500 ML AT 10:00 A.M)
     Route: 041
     Dates: start: 20240712, end: 20240712
  18. RASBURICASE [Concomitant]
     Active Substance: RASBURICASE
     Indication: Product used for unknown indication
     Dosage: 10.5 MG, DAILY, (10.5)MG IN 50ML
     Route: 041
     Dates: start: 20240709, end: 20240710
  19. CHLORPHENIRAMINE MALEATE [Concomitant]
     Active Substance: CHLORPHENIRAMINE MALEATE
     Indication: Product used for unknown indication
     Dosage: 10 MG, DAILY (10 MG IN 100 ML AT 8:00 A.M)
     Route: 041
     Dates: start: 20240708, end: 20240712
  20. LACTULOSE [Concomitant]
     Active Substance: LACTULOSE
     Indication: Product used for unknown indication
     Dosage: 6670 MG, DAILY
     Route: 048
     Dates: start: 20240709, end: 20240710
  21. LACTULOSE [Concomitant]
     Active Substance: LACTULOSE
     Dosage: 6670 MG, BID
     Route: 048
     Dates: start: 20240711, end: 20240711
  22. POLYETHYLENE GLYCOL 3350 [Concomitant]
     Active Substance: POLYETHYLENE GLYCOL 3350
     Indication: Product used for unknown indication
     Dosage: 13800 MG, DAILY
     Route: 048
     Dates: start: 20240708, end: 20240708
  23. POLYETHYLENE GLYCOL 3350 [Concomitant]
     Active Substance: POLYETHYLENE GLYCOL 3350
     Dosage: 13800 MG, BID
     Route: 048
     Dates: start: 20240709, end: 20240710
  24. POLYETHYLENE GLYCOL 3350 [Concomitant]
     Active Substance: POLYETHYLENE GLYCOL 3350
     Dosage: 13800 MG, DAILY
     Route: 048
     Dates: start: 20240711, end: 20240711
  25. PANTOPRAZOLE [Concomitant]
     Active Substance: PANTOPRAZOLE
     Indication: Product used for unknown indication
     Route: 048
     Dates: start: 20240708, end: 20240716
  26. TIMOLOL [Concomitant]
     Active Substance: TIMOLOL
     Indication: Product used for unknown indication
     Dosage: 0.3 ML (0.3 ML AT 8:00 A.M.)
     Route: 047
     Dates: start: 20240708, end: 20240720
  27. DEXAMETHASONE PHOSPHATE [Concomitant]
     Active Substance: DEXAMETHASONE PHOSPHATE
     Indication: Product used for unknown indication
     Dosage: 8 MG, DAILY, (8MG IN 50ML AT 8:00 AM)
     Route: 041
     Dates: start: 20240708, end: 20240712
  28. DEXAMETHASONE PHOSPHATE [Concomitant]
     Active Substance: DEXAMETHASONE PHOSPHATE
     Dosage: 4 MG, DAILY, (4MG IN 100ML AT 5:00 PM)
     Route: 041
     Dates: start: 20240712, end: 20240713
  29. ALBUMIN HUMAN [Concomitant]
     Active Substance: ALBUMIN HUMAN
     Indication: Product used for unknown indication
     Dosage: 10000 MG, BID (10,000 MG )
     Route: 041
     Dates: start: 20240710, end: 20240710
  30. ALBUMIN HUMAN [Concomitant]
     Active Substance: ALBUMIN HUMAN
     Route: 041
     Dates: start: 20240713, end: 20240713
  31. ALBUMIN HUMAN [Concomitant]
     Active Substance: ALBUMIN HUMAN
     Dosage: 10000 MG, TID
     Route: 041
     Dates: start: 20240713, end: 20240720
  32. FLUCONAZOLE [Concomitant]
     Active Substance: FLUCONAZOLE
     Indication: Product used for unknown indication
     Route: 048
     Dates: start: 20240707, end: 20240708
  33. POSACONAZOLE [Concomitant]
     Active Substance: POSACONAZOLE
     Indication: Product used for unknown indication
     Route: 048
     Dates: start: 20240708, end: 20240720
  34. ACETAMINOPHEN [Concomitant]
     Active Substance: ACETAMINOPHEN
     Indication: Product used for unknown indication
     Dosage: 1000 MG (1,000 MG AT 08:00 A.M.)
     Route: 048
     Dates: start: 20240708, end: 20240711
  35. ACETAMINOPHEN [Concomitant]
     Active Substance: ACETAMINOPHEN
     Dosage: 1000 MG (1,000 MG AT 08:00 A.M.)
     Route: 048
     Dates: start: 20240716, end: 20240717
  36. BROMAZEPAM [Concomitant]
     Active Substance: BROMAZEPAM
     Indication: Product used for unknown indication
     Dosage: 1.25 MG (.25 MG AT 10:00 P.M)
     Route: 048
     Dates: start: 20240707, end: 20240720
  37. ACYCLOVIR [Concomitant]
     Active Substance: ACYCLOVIR
     Indication: Product used for unknown indication
     Dosage: 400 MG, DAILY
     Route: 048
     Dates: start: 20240707, end: 20240707
  38. ACYCLOVIR [Concomitant]
     Active Substance: ACYCLOVIR
     Dosage: 400 MG, BID
     Route: 048
     Dates: start: 20240708, end: 20240715
  39. ACYCLOVIR [Concomitant]
     Active Substance: ACYCLOVIR
     Dosage: 400 MG, DAILY
     Route: 048
     Dates: start: 20240716, end: 20240716
  40. LAMIVUDINE [Concomitant]
     Active Substance: LAMIVUDINE
     Indication: Product used for unknown indication
     Dosage: 100 MG (100 MG AT 8:00 P.M)
     Route: 048
     Dates: start: 20240710, end: 20240716
  41. LAMIVUDINE [Concomitant]
     Active Substance: LAMIVUDINE
     Dosage: 100 MG, AT 8:00 PM
     Route: 048
     Dates: start: 20240718, end: 20240718
  42. LAMIVUDINE [Concomitant]
     Active Substance: LAMIVUDINE
     Dosage: UNK100 MG, AT 8:00 PM
     Route: 048
     Dates: start: 20240720, end: 20240720

REACTIONS (6)
  - Renal failure [Unknown]
  - Capillary permeability increased [Recovering/Resolving]
  - Cardiac failure [Recovering/Resolving]
  - Acute kidney injury [Recovering/Resolving]
  - Capillary leak syndrome [Recovered/Resolved]
  - Hepatotoxicity [Recovered/Resolved]

NARRATIVE: CASE EVENT DATE: 20240710
